FAERS Safety Report 4819059-2 (Version None)
Quarter: 2005Q4

REPORT INFORMATION
  Report Type: 
  Country: None (occurrence: None)
  Receive Date: 20051102
  Receipt Date: 20051102
  Transmission Date: 20060501
  Serious: Yes (Hospitalization)
  Sender: FDA-Public Use
  Company Number: None

PATIENT
  Age: 23 Year
  Weight: 70 kg

DRUGS (3)
  1. DOFETILIDE      125 MCG [Suspect]
     Indication: TACHYARRHYTHMIA
     Dosage: 125 MCG   BID   PO
     Route: 048
     Dates: start: 20050426, end: 20050501
  2. WARFARIN    7.5 MG [Suspect]
     Dosage: 7.5MG OR 5 MG   DAILY   PO
     Route: 048
  3. AMIODARONE HCL [Concomitant]

REACTIONS (4)
  - DRUG INTERACTION [None]
  - EPISTAXIS [None]
  - INTERNATIONAL NORMALISED RATIO INCREASED [None]
  - TREATMENT NONCOMPLIANCE [None]
